FAERS Safety Report 8435264-0 (Version None)
Quarter: 2012Q2

REPORT INFORMATION
  Report Type: 
  Country: None (occurrence: None)
  Receive Date: 20120614
  Receipt Date: 20120604
  Transmission Date: 20120825
  Serious: Yes (Hospitalization)
  Sender: FDA-Public Use
  Company Number: FR-VERTEX PHARMACEUTICALS INC.-000000000000000543

PATIENT
  Sex: Female
  Weight: 60 kg

DRUGS (11)
  1. LEXOMIL [Concomitant]
     Indication: ANXIETY
     Dates: start: 20120324
  2. VALSARTAN [Concomitant]
     Indication: HYPERTENSION
     Dates: start: 20120229, end: 20120319
  3. INCIVO [Suspect]
     Indication: HEPATITIS C
     Dosage: DOSAGE FORM: TABLET
     Route: 048
     Dates: start: 20120104, end: 20120319
  4. PEGASYS [Concomitant]
     Indication: HEPATITIS C
     Dosage: DOSAGE FORM: UNSPECIFIED
     Route: 065
     Dates: start: 20120104, end: 20120229
  5. COPEGUS [Concomitant]
     Indication: HEPATITIS C
     Dosage: DOSAGE FORM: UNSPECIFIED, 400X2+200
     Route: 065
     Dates: start: 20120104, end: 20120226
  6. PEGASYS [Concomitant]
     Dosage: DOSAGE FORM: UNSPECIFIED
     Route: 065
     Dates: start: 20120301, end: 20120319
  7. LANTUS [Concomitant]
     Dates: start: 20120325, end: 20120328
  8. COPEGUS [Concomitant]
     Dosage: DOSAGE FORM: UNSPECIFIED
     Route: 065
     Dates: start: 20120228, end: 20120319
  9. LANTUS [Concomitant]
     Indication: DIABETES MELLITUS
     Dates: start: 20111210
  10. LANTUS [Concomitant]
     Dates: start: 20120328
  11. METFORMIN HYDROCHLORIDE [Concomitant]
     Indication: DIABETES MELLITUS
     Dosage: 50MG/1000MG
     Dates: start: 20110101

REACTIONS (2)
  - ESCHERICHIA BACTERAEMIA [None]
  - ANAEMIA [None]
